FAERS Safety Report 10588004 (Version 3)
Quarter: 2015Q2

REPORT INFORMATION
  Report Type: Spontaneous
  Country: US (occurrence: AU)
  Receive Date: 20141117
  Receipt Date: 20150410
  Transmission Date: 20150821
  Serious: Yes (Hospitalization, Other)
  Sender: FDA-Public Use
  Company Number: AU-FRI-1000072324

PATIENT
  Age: 52 Year
  Sex: Female

DRUGS (7)
  1. OLANZAPINE. [Suspect]
     Active Substance: OLANZAPINE
     Dosage: 10 MG
     Route: 065
  2. QUETIAPINE FUMARATE. [Suspect]
     Active Substance: QUETIAPINE FUMARATE
     Indication: SCHIZOPHRENIA
     Dosage: 50 MG
     Route: 065
     Dates: start: 20140613
  3. ASENAPINE [Suspect]
     Active Substance: ASENAPINE
     Dosage: 15 MG
     Route: 060
     Dates: start: 20140530, end: 20140608
  4. ASENAPINE [Suspect]
     Active Substance: ASENAPINE
     Indication: SCHIZOPHRENIA
     Dosage: 10 MG
     Route: 060
     Dates: start: 20140520, end: 20140529
  5. LORAZEPAM. [Suspect]
     Active Substance: LORAZEPAM
     Dosage: 300 MG
     Route: 065
     Dates: start: 201406
  6. PALIPERIDONE [Suspect]
     Active Substance: PALIPERIDONE
     Route: 065
     Dates: start: 201406
  7. CLOZARIL [Suspect]
     Active Substance: CLOZAPINE
     Dosage: 300 MG
     Route: 065
     Dates: start: 2012, end: 20140520

REACTIONS (24)
  - Insomnia [Unknown]
  - Nausea [Unknown]
  - Drug ineffective [Unknown]
  - Myocardial infarction [Unknown]
  - Myocarditis [Recovered/Resolved]
  - Delusion [Unknown]
  - Joint swelling [Unknown]
  - Weight decreased [Unknown]
  - Myocardial ischaemia [Unknown]
  - Congestive cardiomyopathy [Unknown]
  - Salivary hypersecretion [Unknown]
  - Bundle branch block left [Unknown]
  - Constipation [Unknown]
  - Rhinorrhoea [Unknown]
  - Vomiting [Unknown]
  - Electrocardiogram T wave abnormal [Unknown]
  - Sinus tachycardia [Unknown]
  - Left ventricular dysfunction [Recovered/Resolved]
  - Electrocardiogram QT prolonged [Unknown]
  - QRS axis abnormal [Unknown]
  - Bundle branch block right [Unknown]
  - Atrial flutter [Unknown]
  - Diarrhoea [Unknown]
  - Pollakiuria [Unknown]

NARRATIVE: CASE EVENT DATE: 201406
